FAERS Safety Report 5128841-6 (Version None)
Quarter: 2006Q4

REPORT INFORMATION
  Report Type: 
  Country: None (occurrence: None)
  Receive Date: 20061017
  Receipt Date: 20061011
  Transmission Date: 20070319
  Serious: Yes (Other)
  Sender: FDA-Public Use
  Company Number: NZ-GLAXOSMITHKLINE-B0441694A

PATIENT
  Sex: Female

DRUGS (1)
  1. PANADOL TABLETS [Suspect]
     Dosage: 24TAB PER DAY
     Route: 048
     Dates: start: 20061011

REACTIONS (1)
  - INTENTIONAL OVERDOSE [None]
